FAERS Safety Report 5734953-6 (Version None)
Quarter: 2008Q2

REPORT INFORMATION
  Report Type: 
  Country: None (occurrence: None)
  Receive Date: 20080508
  Receipt Date: 20080502
  Transmission Date: 20081010
  Serious: Yes (Hospitalization)
  Sender: FDA-Public Use
  Company Number: TAP2008Q00530

PATIENT
  Age: 29 Year
  Sex: Female
  Weight: 44 kg

DRUGS (7)
  1. LUPRON DEPOT-3 [Suspect]
     Indication: PELVIC PAIN
     Dosage: 11.25 MG (11.25 MG, 1 IN 3 M), INTRAMUSCULAR
     Route: 030
     Dates: start: 20080401
  2. PROZAC [Concomitant]
  3. ALBUTEROL [Concomitant]
  4. ATIVAN [Concomitant]
  5. LOVASTATIN [Concomitant]
  6. DEPAKOTE [Concomitant]
  7. UNSPECIFIED MULTIVITAMIN (MULTIVITAMINS) [Concomitant]

REACTIONS (4)
  - ASTHENIA [None]
  - CONVERSION DISORDER [None]
  - DIPLOPIA [None]
  - DYSARTHRIA [None]
